FAERS Safety Report 19668507 (Version 1)
Quarter: 2021Q3

REPORT INFORMATION
  Report Type: Spontaneous
  Country: CO (occurrence: CO)
  Receive Date: 20210806
  Receipt Date: 20210806
  Transmission Date: 20211014
  Serious: Yes (Other)
  Sender: FDA-Public Use
  Company Number: CO-PFIZER INC-202100951612

PATIENT
  Age: 59 Year
  Sex: Female

DRUGS (1)
  1. XELJANZ XR [Suspect]
     Active Substance: TOFACITINIB CITRATE
     Indication: RHEUMATOID ARTHRITIS
     Dosage: 11 MG, 1X/DAY
     Route: 048
     Dates: start: 2019, end: 202101

REACTIONS (10)
  - Tendonitis [Unknown]
  - Intentional product misuse [Unknown]
  - Cardiomegaly [Unknown]
  - Gastritis [Not Recovered/Not Resolved]
  - Abdominal pain [Unknown]
  - Cholelithiasis [Unknown]
  - Hepatomegaly [Unknown]
  - Kidney infection [Not Recovered/Not Resolved]
  - Anaemia [Unknown]
  - Diarrhoea [Recovering/Resolving]

NARRATIVE: CASE EVENT DATE: 2019
